FAERS Safety Report 8623895 (Version 4)
Quarter: 2013Q3

REPORT INFORMATION
  Report Type: Spontaneous
  Country: CA (occurrence: CA)
  Receive Date: 20120620
  Receipt Date: 20130801
  Transmission Date: 20140515
  Serious: Yes (Hospitalization, Other)
  Sender: FDA-Public Use
  Company Number: CA-JNJFOC-20120607615

PATIENT
  Age: 53 Year
  Sex: Female
  Weight: 74 kg

DRUGS (13)
  1. REMICADE [Suspect]
     Indication: PSORIATIC ARTHROPATHY
     Dosage: 38TH INFUSION
     Route: 042
     Dates: start: 20120614
  2. REMICADE [Suspect]
     Indication: PSORIATIC ARTHROPATHY
     Dosage: 37TH INFUSION
     Route: 042
     Dates: start: 20120425
  3. REMICADE [Suspect]
     Indication: PSORIATIC ARTHROPATHY
     Route: 042
     Dates: start: 2008
  4. REMICADE [Suspect]
     Indication: PSORIATIC ARTHROPATHY
     Route: 042
     Dates: start: 2007
  5. METHOTREXATE [Concomitant]
     Dosage: 1 CC
     Route: 058
     Dates: end: 20120514
  6. AERIUS [Concomitant]
     Indication: PREMEDICATION
     Route: 048
  7. SOLUCORTEF [Concomitant]
     Indication: PREMEDICATION
     Route: 042
  8. COVERSYL [Concomitant]
     Indication: HYPERTENSION
     Route: 065
  9. HCTZ [Concomitant]
     Indication: HYPERTENSION
     Route: 065
  10. CRESTOR [Concomitant]
     Indication: BLOOD CHOLESTEROL INCREASED
     Route: 065
  11. TRAZODONE [Concomitant]
     Indication: DEPRESSION
     Route: 065
  12. CIPRALEX [Concomitant]
     Indication: DEPRESSION
     Route: 065
  13. ZOPICLONE [Concomitant]
     Indication: SLEEP DISORDER
     Route: 065

REACTIONS (4)
  - Ovarian cyst [Unknown]
  - Salpingo-oophorectomy [Recovered/Resolved]
  - Hysterectomy [Recovered/Resolved]
  - Pelvic mass [Recovering/Resolving]
